FAERS Safety Report 10036201 (Version 2)
Quarter: 2014Q2

REPORT INFORMATION
  Report Type: Spontaneous
  Country: US (occurrence: US)
  Receive Date: 20140325
  Receipt Date: 20140417
  Transmission Date: 20141212
  Serious: Yes (Other)
  Sender: FDA-Public Use
  Company Number: US-PFIZER INC-2014084055

PATIENT
  Sex: Female

DRUGS (3)
  1. CELEBREX [Suspect]
     Indication: BACK PAIN
     Dosage: 200 MG, UNK
  2. CELEBREX [Suspect]
     Indication: ARTHRITIS
  3. LIPITOR [Suspect]
     Dosage: UNK

REACTIONS (2)
  - Upper limb fracture [Unknown]
  - Arthropathy [Unknown]
